FAERS Safety Report 10185525 (Version 2)
Quarter: 2014Q2

REPORT INFORMATION
  Report Type: Spontaneous
  Country: CA (occurrence: CA)
  Receive Date: 20140521
  Receipt Date: 20140620
  Transmission Date: 20141212
  Serious: Yes (Other)
  Sender: FDA-Public Use
  Company Number: CA-SA-2014SA061982

PATIENT
  Age: 27 Year
  Sex: Female

DRUGS (2)
  1. CEREZYME [Suspect]
     Indication: GAUCHER^S DISEASE
     Dosage: DOSE:2000 UNIT(S)
     Route: 042
     Dates: start: 201404
  2. PRENATAL VITAMINS [Concomitant]

REACTIONS (2)
  - Foetal death [Unknown]
  - Exposure during pregnancy [Unknown]
